FAERS Safety Report 6269779-0 (Version None)
Quarter: 2009Q3

REPORT INFORMATION
  Report Type: 
  Country: None (occurrence: None)
  Receive Date: 20090716
  Receipt Date: 20090709
  Transmission Date: 20100115
  Serious: Yes (Other)
  Sender: FDA-Public Use
  Company Number: DE-JNJFOC-20090704077

PATIENT
  Age: 22 Year
  Sex: Male

DRUGS (3)
  1. RISPERDAL CONSTA [Suspect]
     Indication: DRUG USE FOR UNKNOWN INDICATION
     Route: 030
  2. DOXYLAMINE SUCCINATE [Concomitant]
     Route: 065
  3. SOLIAN [Concomitant]
     Route: 065

REACTIONS (1)
  - THROMBOSIS [None]
